FAERS Safety Report 20801277 (Version 1)
Quarter: 2022Q2

REPORT INFORMATION
  Report Type: Spontaneous
  Country: CA (occurrence: CA)
  Receive Date: 20220509
  Receipt Date: 20220509
  Transmission Date: 20220721
  Serious: Yes (Hospitalization, Disabling, Congenital Anomaly, Other)
  Sender: FDA-Public Use
  Company Number: CA-AUROBINDO-AUR-APL-2022-015513

PATIENT
  Sex: Female
  Weight: 2 kg

DRUGS (2)
  1. CITALOPRAM [Suspect]
     Active Substance: CITALOPRAM HYDROBROMIDE
     Indication: Depression
     Dosage: 20 MILLIGRAM, ONCE A DAY
     Route: 064
  2. DOXYLAMINE SUCCINATE\PYRIDOXINE HYDROCHLORIDE [Concomitant]
     Active Substance: DOXYLAMINE SUCCINATE\PYRIDOXINE HYDROCHLORIDE
     Indication: Product used for unknown indication
     Dosage: UNK
     Route: 065

REACTIONS (5)
  - Cerebral ventricle dilatation [Recovered/Resolved]
  - Congenital aqueductal stenosis [Recovered/Resolved]
  - Foetal exposure during pregnancy [Recovered/Resolved]
  - Hydrocephalus [Recovered/Resolved]
  - Respiratory distress [Recovered/Resolved]
